FAERS Safety Report 6614558-5 (Version None)
Quarter: 2010Q1

REPORT INFORMATION
  Report Type: 
  Country: None (occurrence: None)
  Receive Date: 20100304
  Receipt Date: 20100304
  Transmission Date: 20100710
  Serious: Yes (Hospitalization)
  Sender: FDA-Public Use
  Company Number: None

PATIENT
  Sex: Female
  Weight: 52.1637 kg

DRUGS (6)
  1. YAZ [Suspect]
     Indication: CONTRACEPTION
     Dosage: 1 TABLET DAILY BY MOUTH
     Route: 048
     Dates: start: 20030101, end: 20050101
  2. YAZ [Suspect]
     Indication: MENSTRUAL CYCLE MANAGEMENT
     Dosage: 1 TABLET DAILY BY MOUTH
     Route: 048
     Dates: start: 20030101, end: 20050101
  3. YAZ [Suspect]
     Indication: CONTRACEPTION
     Dosage: 1 TABLET DAILY BY MOUTH
     Route: 048
     Dates: start: 20050101, end: 20071201
  4. YAZ [Suspect]
     Indication: MENSTRUAL CYCLE MANAGEMENT
     Dosage: 1 TABLET DAILY BY MOUTH
     Route: 048
     Dates: start: 20050101, end: 20071201
  5. YAZ [Suspect]
     Indication: CONTRACEPTION
     Dosage: 1 TABLET DAILY BY MOUTH
     Route: 048
     Dates: start: 20090101
  6. YAZ [Suspect]
     Indication: MENSTRUAL CYCLE MANAGEMENT
     Dosage: 1 TABLET DAILY BY MOUTH
     Route: 048
     Dates: start: 20090101

REACTIONS (4)
  - BILE DUCT STENOSIS [None]
  - JAUNDICE [None]
  - PANCREATITIS [None]
  - POST PROCEDURAL INFECTION [None]
